FAERS Safety Report 9821911 (Version 2)
Quarter: 2014Q1

REPORT INFORMATION
  Report Type: Report from Study
  Country: US (occurrence: US)
  Receive Date: 20140116
  Receipt Date: 20140130
  Transmission Date: 20141002
  Serious: Yes (Hospitalization)
  Sender: FDA-Public Use
  Company Number: PHEH2014US001174

PATIENT
  Sex: Male
  Weight: 16.5 kg

DRUGS (5)
  1. TOBI [Suspect]
     Indication: CYSTIC FIBROSIS
     Dosage: 300 MG, BID, FOR 4 WEEKS
     Route: 055
     Dates: start: 20131115, end: 20131215
  2. TOBI [Suspect]
     Indication: PSEUDOMONAS INFECTION
     Dosage: UNK UKN, UNK
     Route: 055
  3. PULMOZYME [Concomitant]
     Indication: CYSTIC FIBROSIS
     Dosage: UNK UKN, UNK
     Route: 055
  4. ALBUTEROL [Concomitant]
     Indication: CYSTIC FIBROSIS
     Dosage: 1 DF, PRN
     Route: 055
  5. CREON [Concomitant]
     Indication: CYSTIC FIBROSIS
     Dosage: 1 DF, QD WITH MEAL
     Route: 048

REACTIONS (3)
  - Pneumonia [Recovered/Resolved with Sequelae]
  - Pseudomonas infection [Unknown]
  - Drug administered to patient of inappropriate age [Unknown]
